FAERS Safety Report 7396748-X (Version None)
Quarter: 2011Q2

REPORT INFORMATION
  Report Type: 
  Country: None (occurrence: None)
  Receive Date: 20110406
  Receipt Date: 20110329
  Transmission Date: 20111010
  Serious: Yes (Other)
  Sender: FDA-Public Use
  Company Number: DE-ROCHE-768706

PATIENT
  Sex: Female

DRUGS (9)
  1. HERCEPTIN [Concomitant]
     Route: 042
     Dates: start: 20101115
  2. DOCETAXEL [Concomitant]
     Route: 051
  3. DOCETAXEL [Concomitant]
     Indication: BREAST CANCER
     Route: 051
     Dates: start: 20100712, end: 20101025
  4. EPIRUBICIN [Concomitant]
     Indication: BREAST CANCER
  5. CYCLOPHOSPHAMIDE [Concomitant]
     Indication: BREAST CANCER
  6. AVASTIN [Suspect]
     Indication: BREAST CANCER
     Dosage: PATIENT REVEIVED 4TH CYCLE BEVACIZUMAB.
     Route: 042
     Dates: start: 20100712, end: 20101025
  7. AVASTIN [Suspect]
     Route: 042
     Dates: start: 20101115
  8. FLUOROURACIL [Concomitant]
  9. HERCEPTIN [Concomitant]
     Indication: BREAST CANCER
     Route: 042
     Dates: start: 20100712, end: 20101025

REACTIONS (3)
  - ABSCESS [None]
  - TOOTH DISORDER [None]
  - JAW DISORDER [None]
